FAERS Safety Report 4340915-6 (Version None)
Quarter: 2004Q2

REPORT INFORMATION
  Report Type: 
  Country: None (occurrence: None)
  Receive Date: 20040413
  Receipt Date: 20040331
  Transmission Date: 20050107
  Serious: Yes (Hospitalization)
  Sender: FDA-Public Use
  Company Number: 2004206994FR

PATIENT
  Age: 13 Year
  Sex: Female
  Weight: 29 kg

DRUGS (1)
  1. GENOTNORM(SOMATROPIN) POWDER, STERILE [Suspect]
     Dosage: 7 MG/WEEK, SUBCUTANEOUS
     Route: 058
     Dates: start: 20020531

REACTIONS (1)
  - EPIPHYSIOLYSIS [None]
